FAERS Safety Report 5087076-6 (Version None)
Quarter: 2006Q3

REPORT INFORMATION
  Report Type: 
  Country: None (occurrence: None)
  Receive Date: 20060821
  Receipt Date: 20060809
  Transmission Date: 20061208
  Serious: Yes (Hospitalization)
  Sender: FDA-Public Use
  Company Number: 2006097861

PATIENT
  Age: 57 Year
  Sex: Male
  Weight: 48.6 kg

DRUGS (7)
  1. SUTENT [Suspect]
     Indication: METASTATIC RENAL CELL CARCINOMA
     Dosage: 50 MG (50 MG, 1 IN 1 D), ORAL
     Route: 048
     Dates: start: 20060717, end: 20060807
  2. ALLOPURINOL [Concomitant]
  3. MORPHINE [Concomitant]
  4. COLCHICUM JTL LIQ [Concomitant]
  5. RANITIDINE [Concomitant]
  6. BENZYDAMINE - TETRACYCLINE      (BENZYDAMINE, TETRACYCLINE) [Concomitant]
  7. XYLOCAINE [Concomitant]

REACTIONS (5)
  - DEHYDRATION [None]
  - HYPERBILIRUBINAEMIA [None]
  - RENAL IMPAIRMENT [None]
  - TRANSAMINASES INCREASED [None]
  - VOMITING [None]
